FAERS Safety Report 14212255 (Version 2)
Quarter: 2017Q4

REPORT INFORMATION
  Report Type: Spontaneous
  Country: IL (occurrence: IL)
  Receive Date: 20171121
  Receipt Date: 20171222
  Transmission Date: 20180321
  Serious: Yes (Hospitalization, Other)
  Sender: FDA-Public Use
  Company Number: IL-IMPAX LABORATORIES, INC-2017-IPXL-03225

PATIENT
  Age: 16 Year
  Sex: Male

DRUGS (1)
  1. PROPRANOLOL HYDROCHLORIDE IR [Suspect]
     Active Substance: PROPRANOLOL HYDROCHLORIDE
     Indication: PRODUCT USED FOR UNKNOWN INDICATION
     Dosage: 40 TABLETS OF 80 MG (3200 MG)
     Route: 048

REACTIONS (5)
  - Suicide attempt [Recovered/Resolved]
  - Irritability [Recovered/Resolved]
  - Intentional overdose [Recovered/Resolved]
  - Depressed level of consciousness [Recovered/Resolved]
  - Congestive cardiomyopathy [Recovered/Resolved]
